FAERS Safety Report 9119180 (Version 2)
Quarter: 2013Q2

REPORT INFORMATION
  Report Type: Spontaneous
  Country: CA (occurrence: CA)
  Receive Date: 20130226
  Receipt Date: 20130401
  Transmission Date: 20140414
  Serious: Yes (Hospitalization, Other)
  Sender: FDA-Public Use
  Company Number: PHHY2012CA018664

PATIENT
  Sex: Female

DRUGS (1)
  1. SANDOSTATIN LAR [Suspect]
     Indication: NEUROENDOCRINE CARCINOMA METASTATIC
     Dosage: 30 MG, EVERY 4 WEEKS
     Route: 030
     Dates: start: 20120328

REACTIONS (19)
  - Red blood cell count decreased [Unknown]
  - Blood pressure increased [Unknown]
  - Gingival swelling [Unknown]
  - Palpitations [Unknown]
  - Oral discharge [Unknown]
  - Tooth disorder [Unknown]
  - Feeling abnormal [Unknown]
  - Pain [Unknown]
  - Abnormal faeces [Unknown]
  - Influenza [Unknown]
  - Hearing impaired [Unknown]
  - Diarrhoea [Recovered/Resolved]
  - Fatigue [Unknown]
  - Asthenia [Unknown]
  - Faeces pale [Unknown]
  - Alopecia [Unknown]
  - Dizziness [Unknown]
  - Nausea [Unknown]
  - Abdominal pain upper [Unknown]
